FAERS Safety Report 16884621 (Version 1)
Quarter: 2019Q4

REPORT INFORMATION
  Report Type: Report from Study
  Country: CR (occurrence: CR)
  Receive Date: 20191004
  Receipt Date: 20191004
  Transmission Date: 20200122
  Serious: Yes (Other)
  Sender: FDA-Public Use
  Company Number: CR-ASTRAZENECA-2019SF39833

PATIENT
  Age: 61 Year
  Sex: Female

DRUGS (1)
  1. SYMBICORT [Suspect]
     Active Substance: BUDESONIDE\FORMOTEROL FUMARATE DIHYDRATE
     Dosage: 2 PUFFS OF 160MCG/4.5 PER DAY, A PUFF IN THE MORNING AND A PUFF IN THE AFTERNOON
     Route: 055
     Dates: start: 20181204

REACTIONS (1)
  - Asthmatic crisis [Not Recovered/Not Resolved]
